FAERS Safety Report 11748427 (Version 5)
Quarter: 2019Q4

REPORT INFORMATION
  Report Type: Spontaneous
  Country: US (occurrence: US)
  Receive Date: 20151117
  Receipt Date: 20191121
  Transmission Date: 20200122
  Serious: No
  Sender: FDA-Public Use
  Company Number: US-PFIZER INC-2015392113

PATIENT
  Sex: Female

DRUGS (1)
  1. SERTRALINE HCL [Suspect]
     Active Substance: SERTRALINE HYDROCHLORIDE
     Dosage: UNK

REACTIONS (7)
  - Depression [Unknown]
  - Hypervigilance [Unknown]
  - Product substitution issue [Unknown]
  - Drug ineffective [Unknown]
  - Social avoidant behaviour [Unknown]
  - Anger [Unknown]
  - Agitation [Unknown]
